FAERS Safety Report 24716187 (Version 1)
Quarter: 2024Q4

REPORT INFORMATION
  Report Type: Report from Study
  Country: CA (occurrence: CA)
  Receive Date: 20241210
  Receipt Date: 20241210
  Transmission Date: 20250115
  Serious: Yes (Other)
  Sender: SANOFI AVENTIS
  Company Number: CA-DialogSolutions-SAAVPROD-PI706537-C3

PATIENT

DRUGS (1)
  1. OXALIPLATIN [Suspect]
     Active Substance: OXALIPLATIN
     Indication: Metastases to peritoneum
     Dosage: 460 MG/M2

REACTIONS (2)
  - Anastomotic leak [Unknown]
  - Abdominal abscess [Unknown]
